FAERS Safety Report 7257855-5 (Version None)
Quarter: 2011Q1

REPORT INFORMATION
  Report Type: 
  Country: None (occurrence: None)
  Receive Date: 20110129
  Receipt Date: 20100512
  Transmission Date: 20110831
  Serious: No
  Sender: FDA-Public Use
  Company Number: US-ABBOTT-10P-163-0645088-00

PATIENT
  Age: 60 Year
  Sex: Male

DRUGS (15)
  1. IBUPROFEN [Concomitant]
     Indication: BACK PAIN
  2. METHOTREXATE [Concomitant]
     Indication: SYSTEMIC LUPUS ERYTHEMATOSUS
  3. PRAVACHOL [Concomitant]
     Indication: BLOOD CHOLESTEROL ABNORMAL
     Route: 048
  4. FOLIC ACID [Concomitant]
     Indication: VITAMIN SUPPLEMENTATION
     Route: 048
  5. HUMIRA [Suspect]
     Indication: PSORIATIC ARTHROPATHY
     Route: 058
     Dates: start: 20060101, end: 20070101
  6. HUMIRA [Suspect]
     Indication: RHEUMATOID ARTHRITIS
     Route: 058
     Dates: start: 20070101
  7. HUMIRA [Suspect]
     Indication: ANKYLOSING SPONDYLITIS
     Route: 058
  8. HUMIRA [Suspect]
     Indication: SYSTEMIC LUPUS ERYTHEMATOSUS
  9. ZETIA [Concomitant]
     Indication: BLOOD CHOLESTEROL ABNORMAL
     Route: 048
     Dates: start: 20100510
  10. DARVOCET-N 100 [Concomitant]
     Indication: ARTHROPATHY
  11. METHOTREXATE [Concomitant]
     Indication: PSORIATIC ARTHROPATHY
     Dosage: 5/WEEK
     Route: 048
  12. METHOTREXATE [Concomitant]
     Indication: ANKYLOSING SPONDYLITIS
  13. METHOTREXATE [Concomitant]
     Indication: RHEUMATOID ARTHRITIS
  14. DARVOCET-N 100 [Concomitant]
     Indication: BACK PAIN
     Dosage: N-100 AS NEEDED
  15. IBUPROFEN [Concomitant]
     Indication: ARTHRALGIA
     Dosage: 2 DAILY AS NEEDED
     Route: 048

REACTIONS (3)
  - PSORIATIC ARTHROPATHY [None]
  - BREAKTHROUGH PAIN [None]
  - ARTHRALGIA [None]
